FAERS Safety Report 6970920-2 (Version None)
Quarter: 2010Q3

REPORT INFORMATION
  Report Type: 
  Country: None (occurrence: None)
  Receive Date: 20100908
  Receipt Date: 20100830
  Transmission Date: 20110219
  Serious: Yes (Other)
  Sender: FDA-Public Use
  Company Number: CH-PFIZER INC-2010084521

PATIENT
  Age: 74 Year
  Sex: Female
  Weight: 90 kg

DRUGS (5)
  1. TOVIAZ [Suspect]
     Indication: MICTURITION URGENCY
     Dosage: 8 MG, 1X/DAY
     Route: 048
     Dates: start: 20100412, end: 20100422
  2. TOVIAZ [Suspect]
     Indication: URGE INCONTINENCE
  3. OESTRO-GYNAEDRON M [Concomitant]
     Dosage: 1X/WEEK
     Dates: start: 20031201
  4. CIMICIFUGA ROOT [Concomitant]
     Dosage: UNK
     Route: 048
     Dates: start: 20070831
  5. PROGESTOGEL [Concomitant]
     Dosage: 2.5 G, 1X/DAY
     Dates: start: 20100412

REACTIONS (2)
  - DEPRESSION [None]
  - HAEMATOCHEZIA [None]
